FAERS Safety Report 7577169-3 (Version None)
Quarter: 2011Q2

REPORT INFORMATION
  Report Type: 
  Country: None (occurrence: None)
  Receive Date: 20110628
  Receipt Date: 20110621
  Transmission Date: 20111010
  Serious: Yes (Death, Hospitalization)
  Sender: FDA-Public Use
  Company Number: US-CELGENEUS-163-21880-11060056

PATIENT
  Age: 81 Year
  Sex: Female
  Weight: 74.4 kg

DRUGS (20)
  1. PROPYLTHIOURACIL [Concomitant]
     Indication: HYPERTHYROIDISM
     Dosage: 50 MILLIGRAM
     Route: 048
  2. ETODOLAC [Concomitant]
     Indication: ARTHRITIS
     Dosage: 50
     Route: 048
  3. ALLEGRA [Concomitant]
     Dosage: 180
     Route: 065
  4. POTASSIUM [Concomitant]
     Dosage: 20 MILLIEQUIVALENTS
     Route: 065
  5. RED BLOOD CELLS [Concomitant]
     Route: 051
     Dates: start: 20110312, end: 20110330
  6. DEXAMETHASONE [Suspect]
     Dosage: 20 MILLIGRAM
     Route: 048
     Dates: start: 20050802, end: 20060207
  7. DEXAMETHASONE [Suspect]
     Indication: MULTIPLE MYELOMA
     Dosage: 40 MILLIGRAM
     Route: 048
     Dates: start: 20050705, end: 20050801
  8. ZOLOFT [Concomitant]
     Dosage: 50 MILLIGRAM
     Route: 048
  9. ADVAIR DISKUS 100/50 [Concomitant]
     Route: 065
  10. RED BLOOD CELLS [Concomitant]
     Dosage: 2 UNITS
     Route: 051
     Dates: start: 20050501, end: 20050501
  11. RED BLOOD CELLS [Concomitant]
     Indication: PANCYTOPENIA
     Route: 051
     Dates: start: 20050719, end: 20050719
  12. REVLIMID [Suspect]
     Indication: MULTIPLE MYELOMA
     Dosage: 25 MILLIGRAM
     Route: 048
     Dates: start: 20050705
  13. REVLIMID [Suspect]
     Dosage: 25 MILLIGRAM
     Route: 048
     Dates: start: 20080822, end: 20080911
  14. OMEPRAZOLE [Concomitant]
     Dosage: 40 MILLIGRAM
     Route: 065
  15. METFORMIN HCL [Concomitant]
     Route: 065
  16. SKELAXIN [Concomitant]
     Dosage: 180
     Route: 065
  17. RED BLOOD CELLS [Concomitant]
     Route: 051
     Dates: start: 20070408, end: 20070408
  18. LASIX [Concomitant]
     Dosage: 40 MILLIGRAM
     Route: 065
  19. RED BLOOD CELLS [Concomitant]
     Route: 051
     Dates: start: 20080702, end: 20081101
  20. RED BLOOD CELLS [Concomitant]
     Route: 051
     Dates: start: 20090828, end: 20090828

REACTIONS (1)
  - ACUTE MYELOID LEUKAEMIA [None]
